FAERS Safety Report 10153280 (Version 1)
Quarter: 2014Q2

REPORT INFORMATION
  Report Type: Spontaneous
  Country: IE (occurrence: IE)
  Receive Date: 20140505
  Receipt Date: 20140505
  Transmission Date: 20141212
  Serious: Yes (Hospitalization, Other)
  Sender: FDA-Public Use
  Company Number: IE-TEVA-478718ISR

PATIENT
  Age: 7 Decade
  Sex: Female

DRUGS (6)
  1. LONQUEX [Suspect]
     Indication: NEUTROPENIA
     Dosage: 6 MILLIGRAM DAILY; 1 LONQUEX PER 2 WK CHEMO CYCLE (5 CYCLES IN TOTAL)
     Route: 058
     Dates: start: 201401, end: 201403
  2. PACLITAXEL [Suspect]
     Indication: BREAST CANCER
     Dosage: ACT DOSE DENSE CHEMOTHERAPY REGIME (5 CYCLES)
     Dates: start: 201401, end: 20140307
  3. ADRIAMYCIN [Suspect]
     Indication: BREAST CANCER
     Dosage: ACT DOSE DENSE CHEMOTHERAPY REGIME (5 CYCLES)
     Dates: start: 20140110
  4. CYTOXAN [Suspect]
     Indication: BREAST CANCER
     Dosage: ACT DOSE DENSE CHEMOTHERAPY REGIME (5 CYCLES)
     Dates: start: 20140110
  5. EMEND [Concomitant]
  6. MOTILIUM [Concomitant]

REACTIONS (4)
  - Hyperpyrexia [Not Recovered/Not Resolved]
  - Pneumonitis [Not Recovered/Not Resolved]
  - Malaise [Not Recovered/Not Resolved]
  - Bone pain [Recovered/Resolved]
